FAERS Safety Report 10063136 (Version 3)
Quarter: 2014Q2

REPORT INFORMATION
  Report Type: Spontaneous
  Country: US (occurrence: US)
  Receive Date: 20140407
  Receipt Date: 20140417
  Transmission Date: 20141212
  Serious: Yes (Hospitalization)
  Sender: FDA-Public Use
  Company Number: US-BAXTER-2014BAX015442

PATIENT
  Age: 84 Year
  Sex: Female

DRUGS (2)
  1. DIANEAL LOW CALCIUM [Suspect]
     Indication: PERITONEAL DIALYSIS
     Route: 033
     Dates: start: 201302
  2. COUMADIN [Suspect]
     Indication: ATRIAL FIBRILLATION
     Route: 048

REACTIONS (4)
  - Anaemia [Recovered/Resolved]
  - Pericardial haemorrhage [Recovered/Resolved]
  - Hypotension [Recovered/Resolved]
  - Prothrombin time ratio increased [Recovered/Resolved]
